FAERS Safety Report 4830193-3 (Version None)
Quarter: 2005Q4

REPORT INFORMATION
  Report Type: 
  Country: None (occurrence: None)
  Receive Date: 20051115
  Receipt Date: 20051115
  Transmission Date: 20060501
  Serious: Yes (Hospitalization)
  Sender: FDA-Public Use
  Company Number: None

PATIENT
  Age: 45 Year
  Sex: Male
  Weight: 83.9154 kg

DRUGS (5)
  1. ZOSYN [Suspect]
     Indication: CYSTIC FIBROSIS
     Dosage: 4.5GM Q 6H IV
     Route: 042
     Dates: start: 20051007, end: 20051024
  2. ZOSYN [Suspect]
     Indication: PSEUDOMONAS INFECTION
     Dosage: 4.5GM Q 6H IV
     Route: 042
     Dates: start: 20051007, end: 20051024
  3. ZOSYN [Suspect]
     Indication: CYSTIC FIBROSIS
     Dosage: 4.5GM Q6H IV
     Route: 042
     Dates: start: 20051007, end: 20051024
  4. ZOSYN [Suspect]
     Indication: PSEUDOMONAS INFECTION
     Dosage: 4.5GM Q6H IV
     Route: 042
     Dates: start: 20051007, end: 20051024
  5. ZOSYN [Suspect]

REACTIONS (4)
  - ARTHRALGIA [None]
  - CHILLS [None]
  - INFUSION RELATED REACTION [None]
  - PYREXIA [None]
